FAERS Safety Report 9450043 (Version 1)
Quarter: 2013Q3

REPORT INFORMATION
  Report Type: Report from Study
  Country: FR (occurrence: FR)
  Receive Date: 20130809
  Receipt Date: 20130809
  Transmission Date: 20140515
  Serious: Yes (Disabling)
  Sender: FDA-Public Use
  Company Number: FR-ASTELLAS-2013EU006827

PATIENT
  Age: 93 Year
  Sex: Male
  Weight: 63 kg

DRUGS (4)
  1. ENZALUTAMIDE [Suspect]
     Indication: PROSTATE CANCER
     Dosage: 160 MG, UNKNOWN/D
     Route: 048
     Dates: start: 20130715, end: 20130725
  2. CORTANCYL [Concomitant]
     Dosage: 5 MG, UID/QD
     Route: 048
     Dates: start: 20130715
  3. XGEVA [Concomitant]
     Indication: METASTASES TO BONE
     Dosage: 120 MG, MONTHLY
     Route: 058
     Dates: start: 20130318
  4. OROCAL D3 [Concomitant]
     Dosage: UNK
     Route: 065
     Dates: start: 20130318

REACTIONS (2)
  - Myoclonus [Recovered/Resolved]
  - Somnolence [Recovered/Resolved]
